FAERS Safety Report 4771845-3 (Version None)
Quarter: 2005Q3

REPORT INFORMATION
  Report Type: 
  Country: None (occurrence: None)
  Receive Date: 20050916
  Receipt Date: 20050907
  Transmission Date: 20060218
  Serious: Yes (Death, Hospitalization)
  Sender: FDA-Public Use
  Company Number: US-JNJFOC-20050902234

PATIENT
  Age: 25 Year
  Sex: Female

DRUGS (7)
  1. ACETAMINOPHEN [Suspect]
     Route: 048
  2. ACETAMINOPHEN [Suspect]
     Indication: SUICIDE ATTEMPT
     Route: 048
  3. ALPRAZOLAM [Suspect]
     Indication: SUICIDE ATTEMPT
     Route: 048
  4. TRICYCLIC ANTIDEPRESSANT [Suspect]
     Route: 048
  5. TRICYCLIC ANTIDEPRESSANT [Suspect]
     Indication: SUICIDE ATTEMPT
     Route: 048
  6. COCAINE [Suspect]
     Indication: SUICIDE ATTEMPT
  7. UNKNOWN OPIOID [Suspect]
     Indication: SUICIDE ATTEMPT

REACTIONS (11)
  - COMPLETED SUICIDE [None]
  - DRUG SCREEN POSITIVE [None]
  - DRY SKIN [None]
  - ELECTROCARDIOGRAM QT CORRECTED INTERVAL PROLONGED [None]
  - HEPATIC FAILURE [None]
  - INTENTIONAL MISUSE [None]
  - LOSS OF CONSCIOUSNESS [None]
  - METABOLIC ACIDOSIS [None]
  - MYDRIASIS [None]
  - OVERDOSE [None]
  - SINUS TACHYCARDIA [None]
